FAERS Safety Report 8508641-7 (Version None)
Quarter: 2012Q3

REPORT INFORMATION
  Report Type: 
  Country: None (occurrence: None)
  Receive Date: 20120713
  Receipt Date: 20120705
  Transmission Date: 20120928
  Serious: Yes (Other)
  Sender: FDA-Public Use
  Company Number: US-US-EMD SERONO, INC.-7140976

PATIENT
  Sex: Male

DRUGS (3)
  1. ANXIETY PILLS [Concomitant]
     Indication: PRODUCT USED FOR UNKNOWN INDICATION
  2. REBIF [Suspect]
     Indication: MULTIPLE SCLEROSIS
     Route: 058
     Dates: start: 20060101, end: 20120101
  3. REBIF [Suspect]
     Route: 058
     Dates: start: 20120529

REACTIONS (6)
  - PROSTATITIS [None]
  - DYSURIA [None]
  - FEELING ABNORMAL [None]
  - GAIT DISTURBANCE [None]
  - BACK PAIN [None]
  - INJECTION SITE INDURATION [None]
